FAERS Safety Report 11271271 (Version 1)
Quarter: 2015Q3

REPORT INFORMATION
  Report Type: Spontaneous
  Country: SG (occurrence: SG)
  Receive Date: 20150714
  Receipt Date: 20150714
  Transmission Date: 20151125
  Serious: Yes (Hospitalization)
  Sender: FDA-Public Use
  Company Number: PHHY2015SG081148

PATIENT
  Age: 4 Year
  Sex: Female

DRUGS (1)
  1. PREDNISOLONE. [Suspect]
     Active Substance: PREDNISOLONE
     Indication: IMMUNOSUPPRESSION
     Dosage: 1 MG, QD
     Route: 048

REACTIONS (5)
  - Lymphadenopathy mediastinal [Recovering/Resolving]
  - Febrile neutropenia [Recovering/Resolving]
  - Lung infection [Recovering/Resolving]
  - Nodule [Recovering/Resolving]
  - Rash [Recovering/Resolving]
